FAERS Safety Report 18588670 (Version 1)
Quarter: 2020Q4

REPORT INFORMATION
  Report Type: Spontaneous
  Country: US (occurrence: US)
  Receive Date: 20201208
  Receipt Date: 20201208
  Transmission Date: 20210114
  Serious: Yes (Other)
  Sender: FDA-Public Use
  Company Number: US-TEVA-2020-US-1856857

PATIENT
  Age: 62 Year
  Sex: Female

DRUGS (5)
  1. AMOXICILLIN. [Suspect]
     Active Substance: AMOXICILLIN
     Dosage: SUMMER 2020
     Route: 065
     Dates: start: 2020
  2. CLINDAMYCIN. [Suspect]
     Active Substance: CLINDAMYCIN
     Dosage: 600 MILLIGRAM DAILY;
     Route: 048
     Dates: end: 20200807
  3. CLINDAMYCIN. [Suspect]
     Active Substance: CLINDAMYCIN
     Dosage: 600 MILLIGRAM DAILY;
     Route: 048
     Dates: start: 202006
  4. CLINDAMYCIN. [Suspect]
     Active Substance: CLINDAMYCIN
     Dosage: 600 MILLIGRAM DAILY;
     Route: 048
     Dates: start: 20200707, end: 20200713
  5. NIACIN. [Concomitant]
     Active Substance: NIACIN
     Indication: HYPERLIPIDAEMIA

REACTIONS (2)
  - Endodontic procedure [Unknown]
  - Toothache [Unknown]

NARRATIVE: CASE EVENT DATE: 20200701
